APPROVED DRUG PRODUCT: NYSTATIN
Active Ingredient: NYSTATIN
Strength: 100,000 UNITS
Dosage Form/Route: TABLET;VAGINAL
Application: A062615 | Product #001
Applicant: ODYSSEY PHARMACEUTICALS INC
Approved: Oct 17, 1985 | RLD: No | RS: No | Type: DISCN